FAERS Safety Report 19046656 (Version 2)
Quarter: 2021Q2

REPORT INFORMATION
  Report Type: Spontaneous
  Country: US (occurrence: US)
  Receive Date: 20210323
  Receipt Date: 20210426
  Transmission Date: 20210717
  Serious: No
  Sender: FDA-Public Use
  Company Number: US-BAYER-2021-109918

PATIENT
  Age: 30 Year
  Sex: Female
  Weight: 136 kg

DRUGS (1)
  1. MIRENA [Suspect]
     Active Substance: LEVONORGESTREL
     Indication: CONTRACEPTION
     Dosage: 20?G PER DAY, CONTINUOUSLY
     Route: 015
     Dates: start: 20190822, end: 20210305

REACTIONS (6)
  - Device expulsion [Recovered/Resolved]
  - Polycystic ovaries [None]
  - Medical device discomfort [None]
  - Dysmenorrhoea [None]
  - Heavy menstrual bleeding [None]
  - Vaginal disorder [None]

NARRATIVE: CASE EVENT DATE: 20190923
